FAERS Safety Report 8802500 (Version 1)
Quarter: 2012Q4

REPORT INFORMATION
  Report Type: 
  Country: NP (occurrence: NP)
  Receive Date: 20120921
  Receipt Date: 20120921
  Transmission Date: 20130627
  Serious: Yes (Death, Other)
  Sender: FDA-Public Use
  Company Number: PHHY2005NP007699

PATIENT
  Sex: Female

DRUGS (1)
  1. GLIVEC [Suspect]
     Indication: CHRONIC MYELOID LEUKAEMIA
     Dosage: UNK
     Dates: start: 20030521

REACTIONS (3)
  - Death [Fatal]
  - Cerebrovascular accident [Unknown]
  - Neutropenia [Unknown]
